FAERS Safety Report 22182383 (Version 1)
Quarter: 2023Q2

REPORT INFORMATION
  Report Type: Report from Study
  Country: MX (occurrence: None)
  Receive Date: 20230406
  Receipt Date: 20230406
  Transmission Date: 20230721
  Serious: Yes (Hospitalization)
  Sender: FDA-Public Use
  Company Number: MX-Eisai Medical Research-EC-2023-137687

PATIENT
  Age: 42 Year
  Sex: Female

DRUGS (1)
  1. LENVIMA [Suspect]
     Active Substance: LENVATINIB
     Indication: Thyroid cancer
     Route: 048
     Dates: start: 20211120, end: 20230330

REACTIONS (4)
  - Gallbladder disorder [Unknown]
  - Weight decreased [Unknown]
  - Vomiting [Unknown]
  - Taste disorder [Unknown]

NARRATIVE: CASE EVENT DATE: 20230330
